FAERS Safety Report 6016490-7 (Version None)
Quarter: 2008Q4

REPORT INFORMATION
  Report Type: 
  Country: None (occurrence: None)
  Receive Date: 20081222
  Receipt Date: 20081211
  Transmission Date: 20090506
  Serious: Yes (Other)
  Sender: FDA-Public Use
  Company Number: AU-PFIZER INC-2008154228

PATIENT

DRUGS (5)
  1. CHAMPIX [Suspect]
     Dosage: UNK
     Dates: start: 20081124
  2. DRUG, UNSPECIFIED [Concomitant]
  3. DOXEPIN HYDROCHLORIDE [Concomitant]
  4. NEXIUM [Concomitant]
  5. MOBIC [Concomitant]

REACTIONS (3)
  - DIZZINESS [None]
  - HYPERTENSION [None]
  - NAUSEA [None]
